FAERS Safety Report 7677819-7 (Version None)
Quarter: 2011Q3

REPORT INFORMATION
  Report Type: 
  Country: None (occurrence: None)
  Receive Date: 20110811
  Receipt Date: 20110811
  Transmission Date: 20111222
  Serious: Yes (Hospitalization, Other)
  Sender: FDA-Public Use
  Company Number: ES-ABBOTT-11P-144-0702354-00

PATIENT
  Age: 75 Year
  Sex: Male
  Weight: 71 kg

DRUGS (2)
  1. HUMIRA [Suspect]
     Indication: PSORIASIS
     Route: 058
     Dates: start: 20101020, end: 20110104
  2. HUMIRA [Suspect]
     Route: 058
     Dates: start: 20110201

REACTIONS (2)
  - BENIGN PROSTATIC HYPERPLASIA [None]
  - PSORIASIS [None]
